FAERS Safety Report 16859626 (Version 1)
Quarter: 2019Q3

REPORT INFORMATION
  Report Type: Spontaneous
  Country: US (occurrence: US)
  Receive Date: 20190927
  Receipt Date: 20190927
  Transmission Date: 20191005
  Serious: No
  Sender: FDA-Public Use
  Company Number: US-BEH-2019107145

PATIENT
  Age: 42 Year
  Sex: Female

DRUGS (9)
  1. PREDNISONE. [Concomitant]
     Active Substance: PREDNISONE
  2. HIZENTRA [Suspect]
     Active Substance: HUMAN IMMUNOGLOBULIN G
     Indication: IMMUNODEFICIENCY
     Dosage: 40 MILLILITER, QW
     Route: 065
     Dates: start: 20190816
  3. MELOXICAM. [Concomitant]
     Active Substance: MELOXICAM
  4. PHENTERMINE. [Concomitant]
     Active Substance: PHENTERMINE
  5. GABAPENTIN. [Concomitant]
     Active Substance: GABAPENTIN
  6. FISH OIL [Concomitant]
     Active Substance: FISH OIL
  7. LIDOCAINE PRILOCAINE BIOGARAN [Concomitant]
  8. BACLOFEN. [Concomitant]
     Active Substance: BACLOFEN
  9. PRAVASTATIN. [Concomitant]
     Active Substance: PRAVASTATIN

REACTIONS (1)
  - Infusion site irritation [Not Recovered/Not Resolved]
